FAERS Safety Report 19141360 (Version 1)
Quarter: 2021Q2

REPORT INFORMATION
  Report Type: Spontaneous
  Country: ES (occurrence: ES)
  Receive Date: 20210415
  Receipt Date: 20210415
  Transmission Date: 20210717
  Serious: Yes (Other)
  Sender: FDA-Public Use
  Company Number: ES-BAYER-2021-122376

PATIENT
  Age: 85 Year
  Sex: Male

DRUGS (13)
  1. SERETIDE [Concomitant]
     Active Substance: FLUTICASONE PROPIONATE\SALMETEROL XINAFOATE
     Dosage: 2 DF, BID
     Route: 055
     Dates: start: 20210108
  2. ACTIRA [Suspect]
     Active Substance: MOXIFLOXACIN HYDROCHLORIDE
     Indication: BRONCHITIS
     Dosage: 400 MG, QD
     Route: 048
     Dates: start: 202103, end: 202103
  3. LOSARTAN STADA [Concomitant]
     Indication: HYPERTENSION
     Dosage: 50 MG, QD
     Route: 048
     Dates: start: 20210126
  4. MOXON [Concomitant]
     Active Substance: MOXONIDINE
     Dosage: 0.4 MG, QD
     Route: 048
     Dates: start: 20120623
  5. MANIDIPINO CINFA [Concomitant]
     Dosage: 20 MG, QD
     Route: 048
     Dates: start: 20201016
  6. ALOPURINOL CINFA [Concomitant]
     Indication: HYPERURICAEMIA
     Dosage: 100 MG, QOD
     Route: 048
     Dates: start: 20190701
  7. SINTROM [Concomitant]
     Active Substance: ACENOCOUMAROL
     Dosage: UNK
     Route: 048
     Dates: start: 20180905
  8. TAMSULOSINA CINFA [Concomitant]
     Active Substance: TAMSULOSIN HYDROCHLORIDE
     Dosage: 0.4 MG, QD
     Route: 048
     Dates: start: 20201016
  9. SIMVASTATINA CINFA [Concomitant]
     Indication: DYSLIPIDAEMIA
     Dosage: 20 MG, QD
     Route: 048
     Dates: start: 20120525
  10. GABAPENTINA CINFA [Concomitant]
     Active Substance: GABAPENTIN
     Dosage: 400 MG, QD
     Route: 048
     Dates: start: 20200727
  11. ALPRAZOLAM CINFA [Concomitant]
     Dosage: 0.5 MG, QD
     Route: 048
     Dates: start: 20130925
  12. COMIRNATY [Suspect]
     Active Substance: TOZINAMERAN
     Indication: COVID-19 IMMUNISATION
     Dosage: 0.3 ML, ONCE
     Route: 030
     Dates: start: 20210326, end: 20210326
  13. HIDROFEROL [Concomitant]
     Active Substance: CALCIFEDIOL
     Dosage: 0.26 MG, Q1MON
     Route: 048
     Dates: start: 20210108

REACTIONS (5)
  - Visual impairment [Recovered/Resolved]
  - Agitation [Recovered/Resolved]
  - Delirium [Recovered/Resolved]
  - Circadian rhythm sleep disorder [Recovered/Resolved]
  - Disorientation [Recovered/Resolved]

NARRATIVE: CASE EVENT DATE: 20210326
